FAERS Safety Report 22251532 (Version 1)
Quarter: 2023Q2

REPORT INFORMATION
  Report Type: Spontaneous
  Country: ES (occurrence: ES)
  Receive Date: 20230425
  Receipt Date: 20230425
  Transmission Date: 20230721
  Serious: Yes (Other)
  Sender: FDA-Public Use
  Company Number: ES-APIL-2312654US

PATIENT
  Sex: Female

DRUGS (3)
  1. CARIPRAZINE HYDROCHLORIDE [Suspect]
     Active Substance: CARIPRAZINE HYDROCHLORIDE
     Indication: Product used for unknown indication
  2. VALPROIC ACID [Concomitant]
     Active Substance: VALPROIC ACID
  3. LITHIUM [Concomitant]
     Active Substance: LITHIUM

REACTIONS (2)
  - Bipolar disorder [Recovered/Resolved]
  - Stevens-Johnson syndrome [Unknown]
